FAERS Safety Report 20575737 (Version 2)
Quarter: 2022Q2

REPORT INFORMATION
  Report Type: Spontaneous
  Country: US (occurrence: US)
  Receive Date: 20220310
  Receipt Date: 20220427
  Transmission Date: 20220721
  Serious: Yes (Other)
  Sender: FDA-Public Use
  Company Number: US-JNJFOC-20220315671

PATIENT
  Age: 6 Decade
  Sex: Female

DRUGS (4)
  1. ELMIRON [Suspect]
     Active Substance: PENTOSAN POLYSULFATE SODIUM
     Indication: Cystitis interstitial
     Dosage: 2-100 MG TABLETS
     Route: 048
     Dates: start: 1997, end: 2019
  2. ESTROGENS [Concomitant]
     Active Substance: ESTROGENS
     Indication: Menopause
     Dates: start: 20000221, end: 20030723
  3. GUAIFENESIN [Concomitant]
     Active Substance: GUAIFENESIN
     Indication: Cough
     Dates: start: 20000423, end: 20180122
  4. MEDROXYPROGESTERONE [Concomitant]
     Active Substance: MEDROXYPROGESTERONE
     Indication: Menopause
     Dates: start: 20000222, end: 20000723

REACTIONS (4)
  - Dry age-related macular degeneration [Not Recovered/Not Resolved]
  - Maculopathy [Unknown]
  - Off label use [Unknown]
  - Product use issue [Unknown]

NARRATIVE: CASE EVENT DATE: 19970101
